FAERS Safety Report 7473291-0 (Version None)
Quarter: 2011Q2

REPORT INFORMATION
  Report Type: 
  Country: None (occurrence: None)
  Receive Date: 20110511
  Receipt Date: 20110429
  Transmission Date: 20111010
  Serious: Yes (Other)
  Sender: FDA-Public Use
  Company Number: US-JNJFOC-20110503719

PATIENT
  Age: 5 Year

DRUGS (2)
  1. ACETAMINOPHEN [Suspect]
     Indication: PRODUCT USED FOR UNKNOWN INDICATION
     Dosage: 13/MG/KG
     Route: 065
  2. ACETAMINOPHEN [Suspect]
     Route: 065

REACTIONS (3)
  - PYREXIA [None]
  - CONVULSION [None]
  - REACTION TO DRUG EXCIPIENTS [None]
